FAERS Safety Report 8876607 (Version 2)
Quarter: 2013Q1

REPORT INFORMATION
  Report Type: Spontaneous
  Country: GB (occurrence: GB)
  Receive Date: 20121029
  Receipt Date: 20130207
  Transmission Date: 20140127
  Serious: Yes (Other)
  Sender: FDA-Public Use
  Company Number: PHHY2012GB059468

PATIENT
  Age: 4 Year
  Sex: Male
  Weight: 26.4 kg

DRUGS (3)
  1. CETIRIZINE HYDROCHLORIDE [Suspect]
     Indication: SEASONAL ALLERGY
     Route: 048
     Dates: start: 201206
  2. MELATONIN [Suspect]
     Indication: POOR QUALITY SLEEP
     Dosage: 2 MG
     Route: 048
     Dates: start: 201202
  3. MELATONIN [Suspect]
     Dosage: 6 MG
     Route: 048
     Dates: start: 20120531

REACTIONS (3)
  - Depressed level of consciousness [Recovered/Resolved]
  - Wrong drug administered [Unknown]
  - Somnolence [Recovered/Resolved]
